FAERS Safety Report 13494000 (Version 1)
Quarter: 2017Q2

REPORT INFORMATION
  Report Type: Spontaneous
  Country: US (occurrence: US)
  Receive Date: 20170427
  Receipt Date: 20170427
  Transmission Date: 20170830
  Serious: No
  Sender: FDA-Public Use
  Company Number: US-ALKERMES INC.-ALK-2016-001112

PATIENT
  Age: 50 Year
  Sex: Male

DRUGS (1)
  1. VIVITROL [Suspect]
     Active Substance: NALTREXONE
     Indication: DRUG USE DISORDER
     Dosage: 380 MG, QMO
     Route: 030
     Dates: start: 201601, end: 201604

REACTIONS (10)
  - Substance use disorder [Unknown]
  - Drug use disorder [Unknown]
  - Vomiting [Unknown]
  - Dependence [Unknown]
  - Arthralgia [Unknown]
  - Decreased appetite [Unknown]
  - Malaise [Unknown]
  - Withdrawal syndrome [Unknown]
  - Diarrhoea [Unknown]
  - Drug screen positive [Unknown]

NARRATIVE: CASE EVENT DATE: 201601
